FAERS Safety Report 6231342-5 (Version None)
Quarter: 2009Q2

REPORT INFORMATION
  Report Type: 
  Country: None (occurrence: None)
  Receive Date: 20090611
  Receipt Date: 20090608
  Transmission Date: 20091009
  Serious: Yes (Life-Threatening, Other)
  Sender: FDA-Public Use
  Company Number: FR-WYE-G03810109

PATIENT
  Age: 74 Year
  Sex: Female

DRUGS (5)
  1. PIPERACILLIN AND TAZOBACTAM [Suspect]
     Indication: PNEUMONIA
     Dosage: 12 G OF PIPERACILLIN TOTAL DAILY INTRAVENOUS
     Route: 042
     Dates: start: 20090511, end: 20090521
  2. PIPERACILLIN AND TAZOBACTAM [Suspect]
     Indication: URINARY TRACT INFECTION
     Dosage: 12 G OF PIPERACILLIN TOTAL DAILY INTRAVENOUS
     Route: 042
     Dates: start: 20090511, end: 20090521
  3. VENTOLIN [Suspect]
     Indication: PULMONARY EMBOLISM
     Dosage: HIGH DOSES, ON DEMAND INHALATION
     Route: 055
     Dates: start: 20090511, end: 20090514
  4. MIRTAZAPINE [Concomitant]
  5. VASTAREL (TRIMETAZIDINE HYDROCHLORIDE) [Concomitant]

REACTIONS (4)
  - APATHY [None]
  - DYSPHAGIA [None]
  - HYPOKALAEMIA [None]
  - MUSCULAR WEAKNESS [None]
